FAERS Safety Report 7842221-1 (Version None)
Quarter: 2011Q4

REPORT INFORMATION
  Report Type: 
  Country: None (occurrence: None)
  Receive Date: 20111024
  Receipt Date: 20111024
  Transmission Date: 20120403
  Serious: Yes (Life-Threatening, Hospitalization, Disabling)
  Sender: FDA-Public Use
  Company Number: None

PATIENT
  Age: 54 Year
  Sex: Female
  Weight: 41.7309 kg

DRUGS (2)
  1. METHOTREXATE [Suspect]
  2. PREDNISONE [Suspect]

REACTIONS (11)
  - BLOOD PRESSURE DECREASED [None]
  - HEPATIC FAILURE [None]
  - LEG AMPUTATION [None]
  - RESPIRATORY FAILURE [None]
  - DIALYSIS [None]
  - SEPTIC SHOCK [None]
  - RENAL FAILURE [None]
  - RESPIRATORY DISTRESS [None]
  - FUNCTIONAL GASTROINTESTINAL DISORDER [None]
  - URINARY TRACT INFECTION [None]
  - GANGRENE [None]
